FAERS Safety Report 7247627-X (Version None)
Quarter: 2011Q1

REPORT INFORMATION
  Report Type: 
  Country: None (occurrence: None)
  Receive Date: 20110127
  Receipt Date: 20110120
  Transmission Date: 20110831
  Serious: Yes (Hospitalization)
  Sender: FDA-Public Use
  Company Number: US-SANOFI-AVENTIS-2011SA004460

PATIENT
  Age: 70 Year
  Sex: Female

DRUGS (3)
  1. HUMALOG [Concomitant]
  2. LANTUS [Suspect]
     Indication: TYPE 2 DIABETES MELLITUS
     Dosage: DOSE:30 UNIT(S)
     Route: 058
  3. COUMADIN [Concomitant]

REACTIONS (2)
  - THROMBOSIS [None]
  - HYPOVENTILATION [None]
